FAERS Safety Report 7235141-7 (Version None)
Quarter: 2011Q1

REPORT INFORMATION
  Report Type: 
  Country: None (occurrence: None)
  Receive Date: 20110120
  Receipt Date: 20110118
  Transmission Date: 20110831
  Serious: Yes (Other)
  Sender: FDA-Public Use
  Company Number: JP-SHIRE-SPV1-2010-02159

PATIENT
  Age: 50 Year
  Sex: Male

DRUGS (17)
  1. FOSRENOL [Suspect]
     Dosage: 1500 MG DAILY
     Route: 048
     Dates: start: 20091207, end: 20100108
  2. FOSRENOL [Suspect]
     Dosage: 2250 MG DAILY
     Route: 048
     Dates: start: 20100118, end: 20101122
  3. TAKEPRON [Concomitant]
     Indication: PRODUCT USED FOR UNKNOWN INDICATION
     Dosage: 15 MG, UNKNOWN
     Route: 048
     Dates: start: 20060601
  4. DEPAS [Concomitant]
     Indication: PRODUCT USED FOR UNKNOWN INDICATION
     Dosage: 0.5 MG, UNKNOWN
     Route: 048
     Dates: start: 20060603
  5. PHOSBLOCK [Concomitant]
     Indication: HYPERPHOSPHATAEMIA
     Dosage: 1500 MG, UNKNOWN
     Route: 048
     Dates: start: 20070608, end: 20070810
  6. BLOPRESS [Concomitant]
     Indication: PRODUCT USED FOR UNKNOWN INDICATION
     Dosage: 8 MG, UNKNOWN
     Route: 048
     Dates: start: 20090819
  7. MYSLEE [Concomitant]
     Indication: PRODUCT USED FOR UNKNOWN INDICATION
     Dosage: 5 MG, UNKNOWN
     Route: 048
     Dates: start: 20040317
  8. HERBESSER R [Concomitant]
     Indication: PRODUCT USED FOR UNKNOWN INDICATION
     Dosage: 200 MG, UNKNOWN
     Route: 048
     Dates: start: 20040308
  9. PHOSBLOCK [Concomitant]
     Dosage: 2250 MG, UNKNOWN
     Route: 048
     Dates: start: 20070810, end: 20071019
  10. PHOSBLOCK [Concomitant]
     Dosage: 3000 MG, UNKNOWN
     Route: 048
     Dates: start: 20071019, end: 20081231
  11. TENORMIN [Concomitant]
     Indication: PRODUCT USED FOR UNKNOWN INDICATION
     Dosage: 25 MG, UNKNOWN
     Route: 048
     Dates: start: 20060601
  12. ASPIRIN [Concomitant]
     Indication: PRODUCT USED FOR UNKNOWN INDICATION
     Dosage: 100 MG, UNKNOWN
     Route: 048
     Dates: start: 20040308
  13. ALFAROL [Concomitant]
     Indication: PRODUCT USED FOR UNKNOWN INDICATION
     Dosage: 0.25 ?G, UNKNOWN
     Route: 048
     Dates: end: 20100802
  14. REGPARA [Concomitant]
     Indication: PRODUCT USED FOR UNKNOWN INDICATION
     Dosage: 75 MG, UNKNOWN
     Dates: start: 20040324
  15. PHOSBLOCK [Concomitant]
     Dosage: 2500 MG, UNKNOWN
     Route: 048
     Dates: start: 20081231, end: 20091104
  16. FOSRENOL [Suspect]
     Indication: HYPERPHOSPHATAEMIA
     Dosage: 750 MG DAILY
     Route: 048
     Dates: start: 20091102, end: 20091207
  17. FOSRENOL [Suspect]
     Dosage: 2250 DAILY
     Route: 048
     Dates: start: 20101122, end: 20101206

REACTIONS (1)
  - SUBILEUS [None]
